FAERS Safety Report 8891153 (Version 1)
Quarter: 2012Q4

REPORT INFORMATION
  Report Type: 
  Country: NL (occurrence: NL)
  Receive Date: 20121107
  Receipt Date: 20121107
  Transmission Date: 20130627
  Serious: Yes (Other)
  Sender: FDA-Public Use
  Company Number: NL-PFIZER INC-2012277511

PATIENT
  Age: 68 Year
  Sex: Female

DRUGS (6)
  1. PANTOZOL [Suspect]
     Indication: DYSPEPSIA
     Dosage: 20 mg, 1x/day
     Route: 065
     Dates: start: 2011, end: 20121001
  2. PRAVASTATIN SODIUM [Interacting]
     Indication: PROPHYLAXIS
     Dosage: 40 mg, 1x/day
     Route: 065
     Dates: start: 2007, end: 20120918
  3. METOPROLOL [Concomitant]
     Dosage: 1 DF, 1x/day
     Route: 048
     Dates: start: 2007
  4. CLOPIDOGREL [Concomitant]
     Dosage: 75 mg, 1x/day
     Route: 048
     Dates: start: 2011
  5. HYDROCHLOROTHIAZIDE [Concomitant]
     Dosage: 12.5 mg, 1x/day
     Route: 048
     Dates: start: 2008
  6. FORASEQ [Concomitant]
     Dosage: 1 DF, 2x/day
     Route: 055
     Dates: start: 2007

REACTIONS (2)
  - Drug interaction [Recovered/Resolved]
  - Colitis [Recovered/Resolved]
